FAERS Safety Report 20279486 (Version 1)
Quarter: 2021Q4

REPORT INFORMATION
  Report Type: Spontaneous
  Country: US (occurrence: None)
  Receive Date: 20211230
  Receipt Date: 20211230
  Transmission Date: 20220303
  Serious: Yes (Hospitalization)
  Sender: FDA-Public Use
  Company Number: None

PATIENT
  Sex: Male

DRUGS (2)
  1. CAPECITABINE [Suspect]
     Active Substance: CAPECITABINE
     Indication: Colon cancer
     Dosage: OTHER FREQUENCY : DAILY DAYS 1-7;TAKE 2 TABLETS BY MOUTH TWICE DAILY FOR DAYS 1-7 AND DAYS 14-21 OF
     Route: 048
     Dates: start: 202112
  2. CAPECITABINE [Suspect]
     Active Substance: CAPECITABINE
     Dosage: OTHER FREQUENCY : DAILY DAYS 14-21;?
     Route: 048

REACTIONS (1)
  - White blood cell count decreased [None]
